FAERS Safety Report 7521616-X (Version None)
Quarter: 2011Q2

REPORT INFORMATION
  Report Type: 
  Country: None (occurrence: None)
  Receive Date: 20110603
  Receipt Date: 20110516
  Transmission Date: 20111010
  Serious: No
  Sender: FDA-Public Use
  Company Number: US-B.I. PHARMACEUTICALS,INC./RIDGEFIELD-2011-BP-06047BP

PATIENT
  Sex: Male

DRUGS (3)
  1. DILTIAZEM [Concomitant]
     Indication: ATRIAL FIBRILLATION
     Dosage: 120 MG
     Route: 048
     Dates: start: 20110514
  2. PRADAXA [Suspect]
     Indication: ATRIAL FIBRILLATION
     Dosage: 300 MG
     Route: 048
     Dates: start: 20110222
  3. PAW PAW [Concomitant]
     Indication: CHILLBLAINS
     Dosage: 17 MG
     Route: 048

REACTIONS (9)
  - SKIN IRRITATION [None]
  - RASH [None]
  - OEDEMA PERIPHERAL [None]
  - ARTHRALGIA [None]
  - RASH PRURITIC [None]
  - EAR DISORDER [None]
  - EPISTAXIS [None]
  - RECTAL HAEMORRHAGE [None]
  - CONDITION AGGRAVATED [None]
